FAERS Safety Report 17230994 (Version 1)
Quarter: 2020Q1

REPORT INFORMATION
  Report Type: Spontaneous
  Country: GB (occurrence: GB)
  Receive Date: 20200103
  Receipt Date: 20200103
  Transmission Date: 20200409
  Serious: Yes (Other)
  Sender: FDA-Public Use
  Company Number: GB-ASTRAZENECA-2019SF88335

PATIENT
  Age: 77 Year
  Sex: Female
  Weight: 112 kg

DRUGS (8)
  1. AMLODIPINE [Concomitant]
     Active Substance: AMLODIPINE BESYLATE
     Dates: start: 20191206
  2. IBUPROFEN. [Concomitant]
     Active Substance: IBUPROFEN
     Dosage: APPLY SPARINGLY TO AFFECTED AREA ONCE OR TWICE ...
     Dates: start: 20191001, end: 20191002
  3. LEVOTHYROXINE. [Concomitant]
     Active Substance: LEVOTHYROXINE
     Dosage: 125UG/INHAL EVERY OTHER DAY
     Dates: start: 20180829
  4. PARACETAMOL [Concomitant]
     Active Substance: ACETAMINOPHEN
     Indication: PAIN
     Dosage: 2 DF, UP TO 4 HOURLY, MAXIMUM 8 IN 24 HOURS.
     Dates: start: 20190612
  5. EZETIMIBE. [Concomitant]
     Active Substance: EZETIMIBE
     Dates: start: 20180503
  6. NITROFURANTOIN. [Concomitant]
     Active Substance: NITROFURANTOIN
     Dates: start: 20190730
  7. OMEPRAZOLE. [Suspect]
     Active Substance: OMEPRAZOLE
     Route: 048
     Dates: start: 20190325
  8. BECLOMETASONE [Concomitant]
     Active Substance: BECLOMETHASONE DIPROPIONATE
     Dates: start: 20191206

REACTIONS (1)
  - Bladder irritation [Recovered/Resolved]

NARRATIVE: CASE EVENT DATE: 20191206
